FAERS Safety Report 8512435-6 (Version None)
Quarter: 2012Q2

REPORT INFORMATION
  Report Type: 
  Country: None (occurrence: None)
  Receive Date: 20120406
  Receipt Date: 20120228
  Transmission Date: 20120825
  Serious: Yes (Life-Threatening, Hospitalization, Other)
  Sender: FDA-Public Use
  Company Number: US-CYPR-2011-000097

PATIENT
  Sex: Male
  Weight: 136.5327 kg

DRUGS (9)
  1. ASPIRIN [Suspect]
     Indication: CORONARY ARTERY DISEASE
     Dosage: (81 MG QD ORAL) (81 MG QD ORAL)
     Route: 048
     Dates: start: 20050101, end: 20110714
  2. ASPIRIN [Suspect]
     Indication: CORONARY ARTERY DISEASE
     Dosage: (81 MG QD ORAL) (81 MG QD ORAL)
     Route: 048
     Dates: start: 20110719
  3. HYDROCHLOROTHIAZIDE [Concomitant]
  4. LABETALOL HCL [Concomitant]
  5. CYPHER STENT [Concomitant]
  6. TORSEMIDE [Concomitant]
  7. CLOPIDOGREL [Suspect]
     Indication: ANTIPLATELET THERAPY
     Dosage: (75 MG QD ORAL), (75 MG QD ORAL)
     Route: 048
     Dates: start: 20110819
  8. CLOPIDOGREL [Suspect]
     Indication: ANTIPLATELET THERAPY
     Dosage: (75 MG QD ORAL), (75 MG QD ORAL)
     Route: 048
     Dates: start: 20110426, end: 20110714
  9. TRIAMTERENE [Concomitant]

REACTIONS (1)
  - GASTROINTESTINAL HAEMORRHAGE [None]
